FAERS Safety Report 18428256 (Version 1)
Quarter: 2020Q4

REPORT INFORMATION
  Report Type: Spontaneous
  Country: US (occurrence: US)
  Receive Date: 20201026
  Receipt Date: 20201026
  Transmission Date: 20210114
  Serious: Yes (Death, Other)
  Sender: FDA-Public Use
  Company Number: US-PURDUE-USA-2020-0170814

PATIENT
  Age: 61 Year
  Sex: Male

DRUGS (4)
  1. FENTANYL. [Suspect]
     Active Substance: FENTANYL
     Indication: PAIN
     Dosage: 50 MG, Q72H
     Route: 065
  2. DILAUDID [Suspect]
     Active Substance: HYDROMORPHONE HYDROCHLORIDE
     Indication: PAIN
     Dosage: UNK
     Route: 048
  3. OXYCODONE HCL CR TABLETS (SIMILAR TO NDA 22-272) [Suspect]
     Active Substance: OXYCODONE HYDROCHLORIDE
     Indication: PAIN
     Dosage: 10 MG, UNK
     Route: 048
  4. OXYCONTIN [Suspect]
     Active Substance: OXYCODONE HYDROCHLORIDE
     Indication: PAIN
     Dosage: 10 MG, UNK
     Route: 048

REACTIONS (10)
  - Confusional state [Unknown]
  - Septic shock [Fatal]
  - Disturbance in attention [Unknown]
  - Mental disorder [None]
  - Constipation [Unknown]
  - Cardio-respiratory arrest [Fatal]
  - Respiratory depression [Unknown]
  - Mydriasis [Unknown]
  - Depressed level of consciousness [Unknown]
  - Drug dependence [Unknown]

NARRATIVE: CASE EVENT DATE: 20160810
